FAERS Safety Report 23846040 (Version 4)
Quarter: 2025Q1

REPORT INFORMATION
  Report Type: Spontaneous
  Country: PK (occurrence: PK)
  Receive Date: 20240512
  Receipt Date: 20250107
  Transmission Date: 20250409
  Serious: Yes (Other)
  Sender: AMGEN
  Company Number: PK-PFIZER INC-2020457870

PATIENT
  Age: 37 Year
  Sex: Male
  Weight: 118 kg

DRUGS (17)
  1. ENBREL [Suspect]
     Active Substance: ETANERCEPT
     Indication: Ankylosing spondylitis
     Route: 065
     Dates: start: 20161014, end: 2016
  2. ENBREL [Suspect]
     Active Substance: ETANERCEPT
     Dosage: 50 MG, WEEKLY (ONCE WEEKLY (ON EVERY FRIDAY) FOR 16 WEEKS)
     Route: 058
  3. ENBREL [Suspect]
     Active Substance: ETANERCEPT
     Dosage: 50 MG, MONTHLY (ONCE A MONTH (4 TIMES), ON THE 1ST OF EVERY MONTH)
     Route: 058
     Dates: start: 20220913
  4. ENBREL [Suspect]
     Active Substance: ETANERCEPT
     Dosage: 50 MG, WEEKLY (ONCE A WEEK FOR 12 WEEKS)
     Route: 058
  5. ARCOX [Concomitant]
     Indication: Product used for unknown indication
     Route: 065
  6. NUBEROL [Concomitant]
     Indication: Product used for unknown indication
     Route: 065
  7. Calcium + Vitamin D3 + K2 [Concomitant]
     Indication: Product used for unknown indication
     Route: 065
  8. BUPROPION HYDROCHLORIDE [Concomitant]
     Active Substance: BUPROPION HYDROCHLORIDE
     Indication: Product used for unknown indication
     Route: 048
  9. PANADOL [Concomitant]
     Active Substance: ACETAMINOPHEN
     Indication: Pain
     Route: 048
  10. PANADOL [Concomitant]
     Active Substance: ACETAMINOPHEN
     Route: 048
  11. Risek [Concomitant]
     Indication: Product used for unknown indication
     Route: 048
  12. CAC [Concomitant]
     Indication: Product used for unknown indication
     Route: 065
  13. INDROP D [Concomitant]
     Indication: Product used for unknown indication
     Route: 048
  14. INDROP D [Concomitant]
     Route: 065
  15. ZESTRIL [Concomitant]
     Active Substance: LISINOPRIL
     Indication: Product used for unknown indication
     Route: 065
  16. ETORICOXIB [Concomitant]
     Active Substance: ETORICOXIB
     Route: 048
  17. ETORICOXIB [Concomitant]
     Active Substance: ETORICOXIB
     Route: 065

REACTIONS (9)
  - Lumbar vertebral fracture [Unknown]
  - Fall [Unknown]
  - C-reactive protein increased [Unknown]
  - Blood pressure diastolic increased [Unknown]
  - Depression [Unknown]
  - Pain [Unknown]
  - Nausea [Unknown]
  - Abdominal discomfort [Unknown]
  - Off label use [Unknown]

NARRATIVE: CASE EVENT DATE: 20220913
